FAERS Safety Report 15947283 (Version 2)
Quarter: 2019Q2

REPORT INFORMATION
  Report Type: Spontaneous
  Country: US (occurrence: US)
  Receive Date: 20190211
  Receipt Date: 20190412
  Transmission Date: 20190711
  Serious: Yes (Other)
  Sender: FDA-Public Use
  Company Number: US-ASTRAZENECA-2018SF64552

PATIENT
  Age: 18327 Day

DRUGS (12)
  1. LABETALOL [Concomitant]
     Active Substance: LABETALOL\LABETALOL HYDROCHLORIDE
  2. NEXIUM [Suspect]
     Active Substance: ESOMEPRAZOLE MAGNESIUM
     Route: 048
     Dates: start: 2013, end: 2016
  3. GLIMEPIRIDE. [Concomitant]
     Active Substance: GLIMEPIRIDE
  4. LISINOPRIL. [Concomitant]
     Active Substance: LISINOPRIL
  5. VIAGRA [Concomitant]
     Active Substance: SILDENAFIL CITRATE
  6. METFORMIN [Concomitant]
     Active Substance: METFORMIN HYDROCHLORIDE
  7. BENZONATATE. [Concomitant]
     Active Substance: BENZONATATE
  8. NEXIUM [Suspect]
     Active Substance: ESOMEPRAZOLE MAGNESIUM
     Route: 048
     Dates: start: 2015, end: 2016
  9. ATORVASTATIN [Concomitant]
     Active Substance: ATORVASTATIN
  10. HUMALOG [Concomitant]
     Active Substance: INSULIN LISPRO
  11. TRADJENTA [Concomitant]
     Active Substance: LINAGLIPTIN
  12. METFORMIN [Concomitant]
     Active Substance: METFORMIN HYDROCHLORIDE

REACTIONS (2)
  - Chronic kidney disease [Not Recovered/Not Resolved]
  - Acute kidney injury [Unknown]

NARRATIVE: CASE EVENT DATE: 20171129
